FAERS Safety Report 4341434-3 (Version None)
Quarter: 2004Q2

REPORT INFORMATION
  Report Type: 
  Country: None (occurrence: None)
  Receive Date: 20040414
  Receipt Date: 20040329
  Transmission Date: 20050107
  Serious: Yes (Life-Threatening)
  Sender: FDA-Public Use
  Company Number: 2004AC00055

PATIENT
  Sex: Female
  Weight: 2.8 kg

DRUGS (2)
  1. BUPIVACAINE [Suspect]
     Indication: ANAESTHESIA
     Dosage: 2.5 MG TPL
     Route: 061
  2. SUFENTANIL [Suspect]
     Indication: ANAESTHESIA
     Dosage: 5 UG TPL
     Route: 061

REACTIONS (3)
  - APGAR SCORE LOW [None]
  - DRUG EXPOSURE DURING PREGNANCY [None]
  - FOETAL HEART RATE DECREASED [None]
